FAERS Safety Report 9104645 (Version 1)
Quarter: 2013Q1

REPORT INFORMATION
  Report Type: Report from Study
  Country: US (occurrence: US)
  Receive Date: 20130220
  Receipt Date: 20130220
  Transmission Date: 20140127
  Serious: No
  Sender: FDA-Public Use
  Company Number: US-VERTEX PHARMACEUTICALS INC.-2013-002300

PATIENT
  Sex: Male

DRUGS (7)
  1. VX-950 (TELAPREVIR) [Suspect]
     Indication: HEPATITIS C
     Dosage: 750 MG, TID
     Route: 048
  2. PEGASYS [Suspect]
     Indication: HEPATITIS C
     Dosage: UNK
  3. RIBAVIRIN [Suspect]
     Indication: HEPATITIS C
  4. EXFORGE [Concomitant]
     Dosage: 5-160MG
  5. ASACOL HD [Concomitant]
     Dosage: 800 MG, UNK
  6. LYRICA [Concomitant]
     Dosage: 100 MG, UNK
  7. ROXICODONE [Concomitant]
     Dosage: 15 MG, UNK

REACTIONS (3)
  - Headache [Unknown]
  - Pain [Unknown]
  - Fatigue [Unknown]
